FAERS Safety Report 5480115-X (Version None)
Quarter: 2007Q4

REPORT INFORMATION
  Report Type: 
  Country: None (occurrence: None)
  Receive Date: 20071009
  Receipt Date: 20070928
  Transmission Date: 20080405
  Serious: Yes (Other)
  Sender: FDA-Public Use
  Company Number: PHBS2007ES14639

PATIENT
  Age: 32 Year
  Sex: Male

DRUGS (3)
  1. CLOZAPINE [Suspect]
     Indication: SCHIZOPHRENIA
     Dosage: UP TO 400 MG/D
  2. ARIPIPRAZOLE [Suspect]
     Dosage: 15 MG/D
  3. ARIPIPRAZOLE [Suspect]
     Dosage: 30 MG/D

REACTIONS (10)
  - ANHEDONIA [None]
  - ANTISOCIAL BEHAVIOUR [None]
  - APHASIA [None]
  - ATTENTION DEFICIT/HYPERACTIVITY DISORDER [None]
  - BLUNTED AFFECT [None]
  - CONDITION AGGRAVATED [None]
  - DISINHIBITION [None]
  - EXTRAPYRAMIDAL DISORDER [None]
  - OVERDOSE [None]
  - SEDATION [None]
